FAERS Safety Report 6515818-9 (Version None)
Quarter: 2009Q4

REPORT INFORMATION
  Report Type: 
  Country: None (occurrence: None)
  Receive Date: 20091215
  Receipt Date: 20090721
  Transmission Date: 20100525
  Serious: Yes (Other)
  Sender: FDA-Public Use
  Company Number: ENTC2009-0241

PATIENT
  Age: 73 Year
  Sex: Female

DRUGS (1)
  1. STALEVO 100 [Suspect]
     Indication: PARKINSON'S DISEASE
     Dosage: 450 MG, 3 IN 1 D

REACTIONS (1)
  - DEPRESSION [None]
